FAERS Safety Report 7618562-X (Version None)
Quarter: 2011Q3

REPORT INFORMATION
  Report Type: 
  Country: None (occurrence: None)
  Receive Date: 20110718
  Receipt Date: 20110713
  Transmission Date: 20111222
  Serious: Yes (Hospitalization)
  Sender: FDA-Public Use
  Company Number: DE-PFIZER INC-2011158480

PATIENT
  Age: 45 Year
  Sex: Female

DRUGS (3)
  1. SULFASALAZINE [Suspect]
     Indication: RHEUMATOID ARTHRITIS
     Dosage: 200 MG, DAILY
     Dates: start: 20080901
  2. ETANERCEPT [Suspect]
     Indication: RHEUMATOID ARTHRITIS
     Dosage: UNK, ONCE WEEKLY
     Dates: start: 20090801, end: 20100601
  3. LEFLUNOMIDE [Suspect]
     Indication: RHEUMATOID ARTHRITIS
     Dosage: 10 MG, DAILY

REACTIONS (1)
  - BREAST CANCER IN SITU [None]
